FAERS Safety Report 20348024 (Version 1)
Quarter: 2022Q1

REPORT INFORMATION
  Report Type: Spontaneous
  Country: GB (occurrence: None)
  Receive Date: 20220118
  Receipt Date: 20220118
  Transmission Date: 20220424
  Serious: Yes (Death)
  Sender: FDA-Public Use
  Company Number: GB-Merck Healthcare KGaA-9293544

PATIENT
  Age: 80 Year
  Sex: Female

DRUGS (1)
  1. REBIF [Suspect]
     Active Substance: INTERFERON BETA-1A
     Indication: Multiple sclerosis
     Dosage: PRE-FILLED SYRINGE
     Route: 058
     Dates: start: 20200604

REACTIONS (1)
  - Death [Fatal]
